FAERS Safety Report 4368452-3 (Version None)
Quarter: 2004Q2

REPORT INFORMATION
  Report Type: 
  Country: None (occurrence: None)
  Receive Date: 20040602
  Receipt Date: 20040315
  Transmission Date: 20050107
  Serious: No
  Sender: FDA-Public Use
  Company Number: 20040202477

PATIENT
  Age: 74 Year
  Sex: Female

DRUGS (5)
  1. AUGMENTIN [Suspect]
     Indication: DRUG USE FOR UNKNOWN INDICATION
     Route: 065
  2. EPOGEN [Suspect]
     Dosage: 40000IU WEEKLY
     Route: 058
     Dates: start: 20040209
  3. IRON [Concomitant]
     Route: 048
  4. ISONIAZID [Concomitant]
  5. ANTINEOPLASTIC AGENT [Concomitant]

REACTIONS (2)
  - DIARRHOEA [None]
  - STOMACH DISCOMFORT [None]
